FAERS Safety Report 9301934 (Version 2)
Quarter: 2013Q3

REPORT INFORMATION
  Report Type: Spontaneous
  Country: US (occurrence: US)
  Receive Date: 20130521
  Receipt Date: 20130729
  Transmission Date: 20140515
  Serious: Yes (Hospitalization)
  Sender: FDA-Public Use
  Company Number: US-GILEAD-2013-0072749

PATIENT
  Sex: Female

DRUGS (21)
  1. LETAIRIS [Suspect]
     Indication: PULMONARY HYPERTENSION
     Dosage: 5 MG, QD
     Dates: start: 20130204, end: 20130306
  2. ALBUTEROL                          /00139502/ [Concomitant]
  3. AMLODIPINE [Concomitant]
  4. ASPIRIN [Concomitant]
  5. ATENOLOL [Concomitant]
  6. CENTRUM                            /02217401/ [Concomitant]
  7. COLACE [Concomitant]
  8. COUMADIN                           /00014802/ [Concomitant]
  9. COZAAR [Concomitant]
  10. ESTRADIOL [Concomitant]
  11. FUROSEMIDE [Concomitant]
  12. IRON [Concomitant]
  13. MUCINEX [Concomitant]
  14. NEURONTIN [Concomitant]
  15. OMEGA-3 FATTY ACIDS [Concomitant]
  16. REQUIP [Concomitant]
  17. SINGULAIR [Concomitant]
  18. TRAMADOL [Concomitant]
  19. VOLTAREN                           /00372301/ [Concomitant]
  20. WARFARIN [Concomitant]
  21. ZANTAC [Concomitant]

REACTIONS (6)
  - Dyspnoea [Unknown]
  - Swelling [Unknown]
  - Nausea [Unknown]
  - Fatigue [Unknown]
  - Tremor [Unknown]
  - Fluid retention [Unknown]
